FAERS Safety Report 6060006-6 (Version None)
Quarter: 2009Q1

REPORT INFORMATION
  Report Type: 
  Country: None (occurrence: None)
  Receive Date: 20090130
  Receipt Date: 20090122
  Transmission Date: 20090719
  Serious: Yes (Other)
  Sender: FDA-Public Use
  Company Number: VE-ABBOTT-09P-178-0497930-00

PATIENT
  Sex: Female

DRUGS (4)
  1. SEVOFLURANE [Suspect]
     Indication: MAINTENANCE OF ANAESTHESIA
     Route: 055
     Dates: start: 20090113, end: 20090113
  2. FENTANYL-75 [Concomitant]
     Indication: ANALGESIA
     Dosage: 1 AMPULE WITH 2 ML
     Route: 042
     Dates: start: 20090113, end: 20090113
  3. PROPOFOL [Concomitant]
     Indication: ANAESTHESIA
     Dosage: 10 MG/ML
     Route: 042
     Dates: start: 20090113, end: 20090113
  4. ROCURONIUM BROMIDE [Concomitant]
     Indication: MUSCLE RELAXANT THERAPY
     Dosage: 10 MG/ML
     Route: 042
     Dates: start: 20090113, end: 20090113

REACTIONS (1)
  - VENTRICULAR TACHYCARDIA [None]
